FAERS Safety Report 4340164-1 (Version None)
Quarter: 2004Q1

REPORT INFORMATION
  Report Type: 
  Country: None (occurrence: None)
  Receive Date: 20040329
  Receipt Date: 20040130
  Transmission Date: 20041129
  Serious: No
  Sender: FDA-Public Use
  Company Number: 04P-163-0249224-00

PATIENT
  Age: 61 Year
  Sex: Female
  Weight: 72.5755 kg

DRUGS (3)
  1. HUMIRA [Suspect]
     Indication: RHEUMATOID ARTHRITIS
     Dosage: 40 MG, 1 IN 2 WK, SUBCUTANEOUS
     Route: 058
     Dates: start: 20031210
  2. SALMETEROL XINAFOATE [Concomitant]
  3. AZATHIOPRINE [Concomitant]

REACTIONS (4)
  - BREAST TENDERNESS [None]
  - CONDITION AGGRAVATED [None]
  - HOT FLUSH [None]
  - NIGHT SWEATS [None]
